FAERS Safety Report 25284918 (Version 1)
Quarter: 2025Q2

REPORT INFORMATION
  Report Type: Spontaneous
  Country: BG (occurrence: BG)
  Receive Date: 20250508
  Receipt Date: 20250508
  Transmission Date: 20250716
  Serious: Yes (Other)
  Sender: BEIGENE
  Company Number: BG-BEIGENE-BGN-2025-007102

PATIENT
  Age: 75 Year

DRUGS (1)
  1. BRUKINSA [Suspect]
     Active Substance: ZANUBRUTINIB
     Indication: Chronic lymphocytic leukaemia

REACTIONS (5)
  - Hepatic function abnormal [Recovered/Resolved]
  - Leukocytosis [Recovering/Resolving]
  - Lymphocytosis [Recovering/Resolving]
  - Thrombocytosis [Recovered/Resolved]
  - Haematotoxicity [Unknown]
